FAERS Safety Report 6722887-X (Version None)
Quarter: 2010Q2

REPORT INFORMATION
  Report Type: 
  Country: None (occurrence: None)
  Receive Date: 20100512
  Receipt Date: 20100512
  Transmission Date: 20101027
  Serious: Yes (Hospitalization)
  Sender: FDA-Public Use
  Company Number: None

PATIENT
  Sex: Female
  Weight: 74.4353 kg

DRUGS (3)
  1. CISPLATIN [Suspect]
     Indication: BREAST CANCER
     Dosage: 25MG/M2 IV
     Route: 042
     Dates: start: 20100305, end: 20100416
  2. TAXOL [Suspect]
     Indication: BREAST CANCER
     Dosage: 80MG/M2 IV
     Route: 042
     Dates: start: 20100305, end: 20100416
  3. RAD001 [Suspect]
     Indication: BREAST CANCER
     Dosage: 5 MG DAILY
     Dates: start: 20100305, end: 20100430

REACTIONS (4)
  - ANAEMIA [None]
  - BACK PAIN [None]
  - DISEASE PROGRESSION [None]
  - HYPOGLYCAEMIA [None]
